FAERS Safety Report 8087205-6 (Version None)
Quarter: 2012Q1

REPORT INFORMATION
  Report Type: 
  Country: None (occurrence: None)
  Receive Date: 20120128
  Receipt Date: 20110427
  Transmission Date: 20120608
  Serious: No
  Sender: FDA-Public Use
  Company Number: US-ABBOTT-11P-163-0722059-00

PATIENT
  Age: 61 Year
  Sex: Female

DRUGS (6)
  1. BENADRYL [Concomitant]
     Indication: SEASONAL ALLERGY
  2. LEFLUNOMIDE [Concomitant]
     Indication: RHEUMATOID ARTHRITIS
  3. CITRACAL + D [Concomitant]
     Indication: MEDICAL DIET
  4. COMBIVENT [Concomitant]
     Indication: CHRONIC OBSTRUCTIVE PULMONARY DISEASE
     Route: 055
  5. HUMIRA [Suspect]
     Indication: RHEUMATOID ARTHRITIS
     Dates: start: 20100401
  6. SYMBICORT [Concomitant]
     Indication: CHRONIC OBSTRUCTIVE PULMONARY DISEASE
     Dosage: 160/45

REACTIONS (3)
  - SPUTUM DISCOLOURED [None]
  - COUGH [None]
  - BRONCHITIS [None]
